FAERS Safety Report 13434425 (Version 1)
Quarter: 2017Q2

REPORT INFORMATION
  Report Type: Spontaneous
  Country: US (occurrence: US)
  Receive Date: 20170412
  Receipt Date: 20170412
  Transmission Date: 20170830
  Serious: Yes (Other)
  Sender: FDA-Public Use
  Company Number: US-SA-2017SA058952

PATIENT
  Age: 35 Year
  Sex: Male

DRUGS (1)
  1. CLOMIFENE CITRATE [Suspect]
     Active Substance: CLOMIPHENE
     Indication: INFERTILITY MALE
     Route: 065

REACTIONS (7)
  - Visual field defect [Recovering/Resolving]
  - Optic atrophy [Recovering/Resolving]
  - Visual acuity reduced [Recovering/Resolving]
  - Off label use [Unknown]
  - Papilloedema [Recovering/Resolving]
  - Optic ischaemic neuropathy [Recovering/Resolving]
  - Pupillary reflex impaired [Recovering/Resolving]
